FAERS Safety Report 7590192-8 (Version None)
Quarter: 2011Q3

REPORT INFORMATION
  Report Type: 
  Country: None (occurrence: None)
  Receive Date: 20110705
  Receipt Date: 20110629
  Transmission Date: 20111222
  Serious: Yes (Death)
  Sender: FDA-Public Use
  Company Number: CO-PFIZER INC-2011146415

PATIENT
  Sex: Female

DRUGS (5)
  1. METOPROLOL [Concomitant]
     Dosage: 50 MG, 1X/DAY
     Route: 048
  2. OLMESARTAN MEDOXOMIL [Suspect]
     Dosage: OLMESARTAN MEDOXOMIL 20 MG/HYDROCHLOROTHIAZIDE 12.5 MG, 1X/DAY
     Route: 048
  3. LIPITOR [Suspect]
     Dosage: 10 MG, 1X/DAY
     Route: 048
     Dates: start: 20080403
  4. GLIBENCLAMIDE [Concomitant]
     Dosage: 5 MG, 3X/DAY
     Route: 048
  5. METFORMIN [Concomitant]
     Dosage: 850 MG, 2X/DAY
     Route: 048

REACTIONS (1)
  - DEATH [None]
